FAERS Safety Report 19717161 (Version 1)
Quarter: 2021Q3

REPORT INFORMATION
  Report Type: Spontaneous
  Country: US (occurrence: US)
  Receive Date: 20210819
  Receipt Date: 20210819
  Transmission Date: 20211014
  Serious: No
  Sender: FDA-Public Use
  Company Number: US-BAUSCH-BL-2021-024893

PATIENT
  Age: 71 Year
  Sex: Male

DRUGS (1)
  1. IPRATROPIUM BROMIDE NASAL SOLUTION 0.03% [Suspect]
     Active Substance: IPRATROPIUM BROMIDE
     Indication: PRODUCT USED FOR UNKNOWN INDICATION
     Route: 065

REACTIONS (9)
  - Dyspnoea [Unknown]
  - Chest pain [Unknown]
  - Sputum retention [Unknown]
  - Fatigue [Unknown]
  - Panic attack [Unknown]
  - Decreased appetite [Unknown]
  - Dysphonia [Unknown]
  - Dry mouth [Unknown]
  - Vision blurred [Unknown]
